FAERS Safety Report 13510900 (Version 1)
Quarter: 2017Q2

REPORT INFORMATION
  Report Type: Spontaneous
  Country: US (occurrence: US)
  Receive Date: 20170503
  Receipt Date: 20170503
  Transmission Date: 20170830
  Serious: Yes (Other)
  Sender: FDA-Public Use
  Company Number: None

PATIENT
  Age: 68 Year
  Sex: Female
  Weight: 46.35 kg

DRUGS (8)
  1. OMEGA [Concomitant]
     Active Substance: CONVALLARIA MAJALIS\CRATAEGUS LAEVIGATA LEAF\PROXYPHYLLINE
  2. ESTRADIOL. [Concomitant]
     Active Substance: ESTRADIOL
  3. D [Concomitant]
  4. ARMOUR THYROID [Concomitant]
     Active Substance: THYROID, PORCINE
  5. CALCIUM [Concomitant]
     Active Substance: CALCIUM
  6. PROGESTERONE. [Concomitant]
     Active Substance: PROGESTERONE
  7. C [Concomitant]
  8. XIIDRA [Suspect]
     Active Substance: LIFITEGRAST
     Indication: DRY EYE
     Route: 047
     Dates: start: 20170306, end: 20170319

REACTIONS (4)
  - Ulcerative keratitis [None]
  - Dry eye [None]
  - Vision blurred [None]
  - Eye pain [None]

NARRATIVE: CASE EVENT DATE: 20170319
